FAERS Safety Report 24047488 (Version 1)
Quarter: 2024Q3

REPORT INFORMATION
  Report Type: Spontaneous
  Country: US (occurrence: None)
  Receive Date: 20240703
  Receipt Date: 20240703
  Transmission Date: 20241017
  Serious: Yes (Other)
  Sender: ASTRAZENECA
  Company Number: 2024A151817

PATIENT
  Age: 27 Year
  Sex: Male

DRUGS (4)
  1. QUETIAPINE [Suspect]
     Active Substance: QUETIAPINE
     Route: 048
  2. BUPRENORPHINE\NALOXONE [Suspect]
     Active Substance: BUPRENORPHINE\NALOXONE
  3. CLONAZEPAM [Suspect]
     Active Substance: CLONAZEPAM
  4. ETIZOLAM [Suspect]
     Active Substance: ETIZOLAM
     Dosage: 55 NG/ML

REACTIONS (5)
  - Unresponsive to stimuli [Unknown]
  - Head titubation [Unknown]
  - Sleep disorder [Unknown]
  - Fatigue [Unknown]
  - Fall [Unknown]
